FAERS Safety Report 22775403 (Version 2)
Quarter: 2023Q4

REPORT INFORMATION
  Report Type: Report from Study
  Country: US (occurrence: None)
  Receive Date: 20230802
  Receipt Date: 20231016
  Transmission Date: 20240109
  Serious: Yes (Hospitalization, Other)
  Sender: FDA-Public Use
  Company Number: US-ROCHE-3395551

PATIENT
  Age: 72 Year
  Sex: Female
  Weight: 63.6 kg

DRUGS (3)
  1. RITUXIMAB [Suspect]
     Active Substance: RITUXIMAB
     Indication: Mantle cell lymphoma
     Dosage: THE PATIENT ALSO INTENDED TO COMPLETE AN END OF TREATMENT VISIT ON 26/JUL/2023.
     Route: 041
     Dates: start: 20211104
  2. LENALIDOMIDE [Suspect]
     Active Substance: LENALIDOMIDE
     Indication: Mantle cell lymphoma
     Dosage: 15 MG FOR CYCLE 1, THEN ESCALATED AS TOLERATED TO 20 MG, QD, DAYS 1-21 OUT OF 28 DAY CYCLES?THE SUBJ
     Route: 048
     Dates: start: 20191107
  3. ACALABRUTINIB [Suspect]
     Active Substance: ACALABRUTINIB
     Indication: Mantle cell lymphoma
     Dosage: THE SUBJECT WAS NO LONGER ON THE ORAL REGIMEN AFTER CYCLE 25 PER PROTOCOL CRITERIA
     Route: 048
     Dates: start: 20191107

REACTIONS (3)
  - Syncope [Unknown]
  - COVID-19 [Unknown]
  - Pneumonia [Unknown]

NARRATIVE: CASE EVENT DATE: 20230619
